FAERS Safety Report 19575213 (Version 2)
Quarter: 2022Q3

REPORT INFORMATION
  Report Type: Report from Study
  Country: US (occurrence: US)
  Receive Date: 20210719
  Receipt Date: 20220713
  Transmission Date: 20221026
  Serious: No
  Sender: FDA-Public Use
  Company Number: US-VANDA PHARMACEUTICALS, INC-2021TASUS004645

PATIENT
  Sex: Male
  Weight: 114.74 kg

DRUGS (1)
  1. HETLIOZ [Suspect]
     Active Substance: TASIMELTEON
     Indication: Non-24-hour sleep-wake disorder
     Dosage: 20 MILLIGRAM, QHS (BEFORE BEDTIME AT THE SAME TIME EVERY NIGHT)
     Route: 048
     Dates: start: 201707

REACTIONS (13)
  - Hallucinations, mixed [Unknown]
  - Condition aggravated [Unknown]
  - Balance disorder [Unknown]
  - Gait disturbance [Unknown]
  - Depressed level of consciousness [Unknown]
  - Urinary tract infection [Unknown]
  - Upper respiratory tract infection [Unknown]
  - Somnolence [Unknown]
  - Headache [Unknown]
  - Hepatic enzyme increased [Unknown]
  - Nightmare [Unknown]
  - Abnormal dreams [Unknown]
  - Inappropriate schedule of product administration [Unknown]
